FAERS Safety Report 18997185 (Version 2)
Quarter: 2021Q2

REPORT INFORMATION
  Report Type: Report from Study
  Country: None (occurrence: US)
  Receive Date: 20210311
  Receipt Date: 20210428
  Transmission Date: 20210717
  Serious: Yes (Hospitalization, Other)
  Sender: FDA-Public Use
  Company Number: US-ABBVIE-21K-163-3804567-00

PATIENT
  Sex: Female

DRUGS (4)
  1. VENCLEXTA [Suspect]
     Active Substance: VENETOCLAX
     Indication: B-CELL PROLYMPHOCYTIC LEUKAEMIA
     Route: 048
  2. METOPROLOL. [Suspect]
     Active Substance: METOPROLOL
     Indication: PRODUCT USED FOR UNKNOWN INDICATION
     Route: 065
  3. VENCLEXTA [Suspect]
     Active Substance: VENETOCLAX
     Route: 048
     Dates: start: 20200728, end: 20200804
  4. VENCLEXTA [Suspect]
     Active Substance: VENETOCLAX
     Route: 048

REACTIONS (21)
  - Dementia [Unknown]
  - Feeling abnormal [Unknown]
  - Vomiting [Unknown]
  - Renal impairment [Unknown]
  - Nausea [Recovered/Resolved]
  - Mobility decreased [Recovering/Resolving]
  - Urinary tract infection [Unknown]
  - Bronchitis [Recovering/Resolving]
  - Echocardiogram abnormal [Unknown]
  - Chest pain [Recovering/Resolving]
  - Haematochezia [Recovered/Resolved]
  - Cardiac disorder [Unknown]
  - Cerebrovascular accident [Unknown]
  - Emotional disorder [Not Recovered/Not Resolved]
  - Ventricular extrasystoles [Unknown]
  - Haemoglobin increased [Recovering/Resolving]
  - Gastrointestinal haemorrhage [Recovering/Resolving]
  - Mobility decreased [Not Recovered/Not Resolved]
  - Heart rate abnormal [Unknown]
  - Heart rate decreased [Unknown]
  - Suspected COVID-19 [Recovering/Resolving]

NARRATIVE: CASE EVENT DATE: 2021
